FAERS Safety Report 8268282-6 (Version None)
Quarter: 2012Q2

REPORT INFORMATION
  Report Type: 
  Country: None (occurrence: None)
  Receive Date: 20120409
  Receipt Date: 20120402
  Transmission Date: 20120825
  Serious: Yes (Other)
  Sender: FDA-Public Use
  Company Number: PHHY2012JP028272

PATIENT
  Age: 50 Year
  Sex: Female

DRUGS (4)
  1. INSULIN [Suspect]
     Indication: HYPERGLYCAEMIA
  2. METHOTREXATE [Concomitant]
     Indication: GRAFT VERSUS HOST DISEASE
     Dosage: 7 MG/M2, UNK
  3. TACROLIMUS [Suspect]
     Indication: GRAFT VERSUS HOST DISEASE
     Dosage: 0.03 MG/KG, UNK
     Route: 048
  4. PREDNISOLONE [Suspect]
     Dosage: UNK

REACTIONS (7)
  - HYPERGLYCAEMIA [None]
  - GRAFT VERSUS HOST DISEASE [None]
  - SKIN EROSION [None]
  - OEDEMA PERIPHERAL [None]
  - DRUG INEFFECTIVE [None]
  - CONCOMITANT DISEASE AGGRAVATED [None]
  - BLISTER [None]
